FAERS Safety Report 8042080-0 (Version None)
Quarter: 2012Q1

REPORT INFORMATION
  Report Type: 
  Country: None (occurrence: None)
  Receive Date: 20120112
  Receipt Date: 20111201
  Transmission Date: 20120608
  Serious: Yes (Other)
  Sender: FDA-Public Use
  Company Number: HN-SANOFI-AVENTIS-2012SA001832

PATIENT
  Sex: Male

DRUGS (1)
  1. ARAVA [Suspect]
     Route: 064
     Dates: start: 20101004, end: 20110405

REACTIONS (2)
  - FOETAL EXPOSURE DURING PREGNANCY [None]
  - FOETAL DISTRESS SYNDROME [None]
